FAERS Safety Report 8593960-9 (Version None)
Quarter: 2012Q3

REPORT INFORMATION
  Report Type: 
  Country: None (occurrence: None)
  Receive Date: 20120814
  Receipt Date: 20120808
  Transmission Date: 20120928
  Serious: No
  Sender: FDA-Public Use
  Company Number: US-ASTRAZENECA-2010SE19465

PATIENT
  Age: 58 Year
  Sex: Female
  Weight: 63.5 kg

DRUGS (9)
  1. XANAX [Concomitant]
     Route: 048
  2. LORTAB [Concomitant]
  3. HALCION [Concomitant]
     Route: 048
  4. SEROQUEL [Suspect]
     Route: 048
  5. PEPCID [Concomitant]
     Route: 048
  6. NORCO [Concomitant]
     Route: 048
  7. SEROQUEL [Suspect]
     Indication: BIPOLAR DISORDER
     Route: 048
     Dates: start: 20100329, end: 20100101
  8. SEROQUEL [Suspect]
     Dosage: AS REQUIRED
     Route: 048
     Dates: start: 20120801
  9. SEROQUEL [Suspect]
     Route: 048
     Dates: start: 20100101, end: 20100101

REACTIONS (14)
  - ADVERSE DRUG REACTION [None]
  - DYSPHEMIA [None]
  - CRYING [None]
  - DROOLING [None]
  - INTENTIONAL DRUG MISUSE [None]
  - DYSKINESIA [None]
  - MIGRAINE [None]
  - DRY MOUTH [None]
  - DIZZINESS [None]
  - DYSPNOEA [None]
  - CONFUSIONAL STATE [None]
  - PALPITATIONS [None]
  - INSOMNIA [None]
  - DRUG INEFFECTIVE [None]
